FAERS Safety Report 8255314-4 (Version None)
Quarter: 2012Q1

REPORT INFORMATION
  Report Type: 
  Country: None (occurrence: None)
  Receive Date: 20120330
  Receipt Date: 20120314
  Transmission Date: 20120608
  Serious: Yes (Hospitalization, Other)
  Sender: FDA-Public Use
  Company Number: 2011-000188

PATIENT
  Age: 54 Year
  Sex: Female

DRUGS (13)
  1. COLECALCIFEROL (COLECALCIFEROL) [Concomitant]
  2. ACTONEL [Suspect]
     Indication: OSTEOPOROSIS
     Dosage: 150 MG ONCE MONTHLY, ORAL
     Route: 048
     Dates: start: 20081230, end: 20100301
  3. ACTONEL [Suspect]
     Indication: OSTEOPENIA
     Dosage: 150 MG ONCE MONTHLY, ORAL
     Route: 048
     Dates: start: 20081230, end: 20100301
  4. VITAMINS /90003601/ [Concomitant]
  5. CALCIUM CITRATE (CALCIUM CITRATE) [Concomitant]
  6. VITAMIN E /00110501/ (TOCOPHEROL) [Concomitant]
  7. ASPIRIN [Concomitant]
  8. VITAMIN C /00008001/ (ASCORBIC ACID) [Concomitant]
  9. FOSAMAX [Suspect]
     Indication: OSTEOPOROSIS
     Dosage: 70 MG UNKNOWN, ORAL
     Route: 048
     Dates: start: 20020801, end: 20061120
  10. FOSAMAX [Suspect]
     Indication: OSTEOPENIA
     Dosage: 70 MG UNKNOWN, ORAL
     Route: 048
     Dates: start: 20020801, end: 20061120
  11. SIMVASTATIN [Concomitant]
  12. ACTONEL [Suspect]
     Indication: OSTEOPOROSIS
     Dosage: 35 MG ONCE WEEKLY, ORAL
     Route: 048
     Dates: start: 20061101, end: 20080801
  13. ACTONEL [Suspect]
     Indication: OSTEOPENIA
     Dosage: 35 MG ONCE WEEKLY, ORAL
     Route: 048
     Dates: start: 20061101, end: 20080801

REACTIONS (14)
  - PAIN [None]
  - HYPERCALCIURIA [None]
  - FEMUR FRACTURE [None]
  - ARTHRALGIA [None]
  - GAIT DISTURBANCE [None]
  - LOW TURNOVER OSTEOPATHY [None]
  - BONE LOSS [None]
  - STRESS FRACTURE [None]
  - BONE DISORDER [None]
  - ASTHENIA [None]
  - FALL [None]
  - OSTEOGENESIS IMPERFECTA [None]
  - OSTEOPENIA [None]
  - LIGAMENT RUPTURE [None]
